FAERS Safety Report 9402983 (Version 2)
Quarter: 2013Q3

REPORT INFORMATION
  Report Type: Spontaneous
  Country: US (occurrence: US)
  Receive Date: 20130716
  Receipt Date: 20130814
  Transmission Date: 20140515
  Serious: Yes (Disabling, Other)
  Sender: FDA-Public Use
  Company Number: US-ROXANE LABORATORIES, INC.-2013-RO-01152RO

PATIENT
  Sex: Male

DRUGS (6)
  1. DEXAMETHASONE [Suspect]
     Indication: BRAIN OEDEMA
     Dosage: 12 MG
     Dates: end: 20130711
  2. DEXAMETHASONE [Suspect]
     Dosage: 24 MG
     Dates: start: 20130712
  3. ALPRAZOLAM [Concomitant]
  4. LEVETIRACETAM [Concomitant]
  5. FAMOTIDINE [Concomitant]
  6. TEMODAR [Concomitant]
     Indication: BRAIN NEOPLASM MALIGNANT

REACTIONS (4)
  - Abasia [Not Recovered/Not Resolved]
  - Brain oedema [Not Recovered/Not Resolved]
  - Drug ineffective [Not Recovered/Not Resolved]
  - Product quality issue [Not Recovered/Not Resolved]
